FAERS Safety Report 18157542 (Version 1)
Quarter: 2020Q3

REPORT INFORMATION
  Report Type: Spontaneous
  Country: ES (occurrence: ES)
  Receive Date: 20200817
  Receipt Date: 20200817
  Transmission Date: 20201103
  Serious: Yes (Hospitalization)
  Sender: FDA-Public Use
  Company Number: ES-TEVA-2020-ES-1813930

PATIENT
  Age: 53 Year
  Sex: Male

DRUGS (3)
  1. AMOXICILINA + ACIDO CLAVULANICO [Suspect]
     Active Substance: AMOXICILLIN\CLAVULANIC ACID
     Indication: HERPES ZOSTER
     Dosage: 875/125MG
     Route: 048
     Dates: start: 20200412, end: 20200418
  2. VALTREX 1.000 MG COMPRIMIDOS RECUBIERTOS CON PELICULA , 21 COMPRIMIDOS [Concomitant]
     Indication: HERPES ZOSTER
     Route: 048
     Dates: start: 20200409, end: 20200421
  3. VALTREX 1.000 MG COMPRIMIDOS RECUBIERTOS CON PELICULA , 21 COMPRIMIDOS [Concomitant]
     Route: 048
     Dates: start: 20200514, end: 20200520

REACTIONS (1)
  - Hepatitis acute [Recovering/Resolving]

NARRATIVE: CASE EVENT DATE: 20200529
